FAERS Safety Report 8872529 (Version 3)
Quarter: 2013Q1

REPORT INFORMATION
  Report Type: Spontaneous
  Country: JP (occurrence: JP)
  Receive Date: 20121029
  Receipt Date: 20130222
  Transmission Date: 20140127
  Serious: Yes (Hospitalization)
  Sender: FDA-Public Use
  Company Number: JP-B.I. PHARMACEUTICALS,INC./RIDGEFIELD-2012-BP-26497NB

PATIENT
  Age: 60 Year
  Sex: Female
  Weight: 63 kg

DRUGS (13)
  1. MICARDIS [Suspect]
     Indication: HYPERTENSION
     Dosage: 40 MG
     Route: 048
     Dates: start: 20080816, end: 20121012
  2. CRESTOR [Concomitant]
     Indication: HYPERLIPIDAEMIA
     Dosage: 2.5 MG
     Route: 048
     Dates: start: 20080816, end: 20121005
  3. BAYASPIRIN [Concomitant]
     Dosage: 100 MG
     Route: 048
     Dates: start: 20080816
  4. TAKEPRON [Concomitant]
     Dosage: 15 MG
     Route: 048
     Dates: start: 20080816
  5. ARTIST [Concomitant]
     Dosage: 10 MG
     Route: 048
     Dates: start: 20080816, end: 20100106
  6. AMLODIN  OD [Concomitant]
     Dosage: 2.5 MG
     Route: 048
     Dates: start: 20081226
  7. CELECOX [Concomitant]
     Dosage: 200 MG
     Route: 048
     Dates: start: 20090408, end: 20090415
  8. SEFTAC [Concomitant]
     Dosage: 100 MG
     Route: 048
     Dates: start: 20090408, end: 20090415
  9. BIOFERMIN [Concomitant]
     Route: 048
     Dates: start: 20090520, end: 20090523
  10. LOPEMIN [Concomitant]
     Dosage: 1 MG
     Route: 048
     Dates: start: 20090520, end: 20090523
  11. SUNRYTHM [Concomitant]
     Dosage: 50 MG
     Route: 048
     Dates: start: 20100106, end: 20100116
  12. MAINTATE [Concomitant]
     Dosage: 5 MG
     Route: 048
     Dates: start: 20100108
  13. SUNRYTHM [Concomitant]
     Indication: ATRIAL FLUTTER
     Route: 048
     Dates: start: 20050713, end: 20050725

REACTIONS (2)
  - Polymyositis [Unknown]
  - Blood creatine phosphokinase increased [Not Recovered/Not Resolved]
